FAERS Safety Report 16765467 (Version 2)
Quarter: 2025Q2

REPORT INFORMATION
  Report Type: Report from Study
  Country: GB (occurrence: GB)
  Receive Date: 20190903
  Receipt Date: 20250624
  Transmission Date: 20250717
  Serious: Yes (Death, Other)
  Sender: AUROBINDO
  Company Number: GB-AUROBINDO-AUR-APL-2019-057220

PATIENT
  Sex: Male

DRUGS (7)
  1. FLECAINIDE [Suspect]
     Active Substance: FLECAINIDE
     Indication: Tachycardia foetal
     Route: 064
  2. FLECAINIDE [Suspect]
     Active Substance: FLECAINIDE
     Route: 064
  3. AMIODARONE [Suspect]
     Active Substance: AMIODARONE
     Indication: Tachycardia foetal
     Route: 064
  4. SOTALOL [Suspect]
     Active Substance: SOTALOL
     Indication: Tachycardia foetal
     Route: 064
  5. DIGOXIN [Suspect]
     Active Substance: DIGOXIN
     Indication: Tachycardia foetal
     Route: 064
  6. DIGOXIN [Suspect]
     Active Substance: DIGOXIN
     Route: 064
  7. DIGOXIN [Suspect]
     Active Substance: DIGOXIN
     Route: 064

REACTIONS (7)
  - Respiratory distress [Fatal]
  - Supraventricular tachycardia [Fatal]
  - Low birth weight baby [Unknown]
  - Premature baby [Unknown]
  - Live birth [Unknown]
  - Drug ineffective [Unknown]
  - Foetal exposure during pregnancy [Unknown]
